FAERS Safety Report 7797083-8 (Version None)
Quarter: 2011Q4

REPORT INFORMATION
  Report Type: 
  Country: None (occurrence: None)
  Receive Date: 20111005
  Receipt Date: 20110930
  Transmission Date: 20120403
  Serious: Yes (Death, Life-Threatening, Hospitalization, Other)
  Sender: FDA-Public Use
  Company Number: JP-SANOFI-AVENTIS-2011SA064529

PATIENT
  Age: 66 Year
  Sex: Female
  Weight: 37.8 kg

DRUGS (8)
  1. LEVOLEUCOVORIN CALCIUM [Concomitant]
     Dates: start: 20090602, end: 20091118
  2. LOXONIN [Concomitant]
     Dates: start: 20090530, end: 20091130
  3. CAMPTOSAR [Concomitant]
     Dates: start: 20091007, end: 20091118
  4. DEXAMETHASONE [Concomitant]
     Dates: start: 20090602, end: 20091118
  5. FLUOROURACIL [Concomitant]
     Dates: start: 20090602, end: 20091118
  6. GRANISETRON [Concomitant]
     Dates: start: 20090602, end: 20091118
  7. OXALIPLATIN [Suspect]
     Route: 041
     Dates: start: 20090602, end: 20090916
  8. BEVACIZUMAB [Suspect]
     Route: 041
     Dates: start: 20090701, end: 20091118

REACTIONS (9)
  - ABDOMINAL PAIN [None]
  - INFECTIOUS PERITONITIS [None]
  - NEUROPATHY PERIPHERAL [None]
  - HEPATIC FAILURE [None]
  - EPISTAXIS [None]
  - PYREXIA [None]
  - ILEAL ULCER [None]
  - ILEAL PERFORATION [None]
  - SEPTIC SHOCK [None]
